FAERS Safety Report 9374981 (Version 2)
Quarter: 2013Q3

REPORT INFORMATION
  Report Type: Report from Study
  Country: FR (occurrence: FR)
  Receive Date: 20130628
  Receipt Date: 20130802
  Transmission Date: 20140515
  Serious: Yes (Hospitalization)
  Sender: FDA-Public Use
  Company Number: PHHY2013FR066921

PATIENT
  Sex: Male

DRUGS (5)
  1. NEORAL [Suspect]
     Indication: RENAL TRANSPLANT
     Dosage: 75 MG, BID
     Route: 048
     Dates: start: 20110415, end: 20121219
  2. NEORAL [Suspect]
     Dosage: 75 MG, BID
     Route: 048
     Dates: start: 20130125
  3. MYCOPHENOLIC ACID [Suspect]
     Indication: RENAL TRANSPLANT
     Dosage: 720 MG, BID
     Route: 048
     Dates: start: 20101224
  4. ADVAGRAF [Concomitant]
     Indication: RENAL TRANSPLANT
     Dates: start: 20121220, end: 20130124
  5. CORTANCYL [Concomitant]
     Indication: RENAL TRANSPLANT
     Dosage: 2.5 MG, UNK
     Dates: start: 20110415

REACTIONS (1)
  - Mental disorder [Recovering/Resolving]
